FAERS Safety Report 9230610 (Version 1)
Quarter: 2013Q2

REPORT INFORMATION
  Report Type: Spontaneous
  Country: US (occurrence: US)
  Receive Date: 20130415
  Receipt Date: 20130415
  Transmission Date: 20140414
  Serious: No
  Sender: FDA-Public Use
  Company Number: US-BAYER-2013-046649

PATIENT
  Age: 66 Year
  Sex: Female
  Weight: 86.17 kg

DRUGS (3)
  1. ALEVE CAPLET [Suspect]
     Dosage: 2 DF, BID
     Route: 048
  2. METOPROLOL [Concomitant]
  3. WATER PILL [Concomitant]

REACTIONS (3)
  - Overdose [None]
  - Drug ineffective [None]
  - Incorrect drug administration duration [None]
